FAERS Safety Report 12267797 (Version 1)
Quarter: 2016Q2

REPORT INFORMATION
  Report Type: Report from Study
  Country: GB (occurrence: GB)
  Receive Date: 20160414
  Receipt Date: 20160414
  Transmission Date: 20160815
  Serious: Yes (Death)
  Sender: FDA-Public Use
  Company Number: GB-MYLANLABS-2016M1015311

PATIENT

DRUGS (5)
  1. ETOPOSIDE. [Suspect]
     Active Substance: ETOPOSIDE
     Dosage: 50 MG/M2/DAY FOR 21 DAYS EVERY 4 WEEKS
     Route: 048
  2. CISPLATIN. [Concomitant]
     Active Substance: CISPLATIN
     Indication: OVARIAN CANCER
     Dosage: 50 MG/M2 ON DAYS 1, 8, 15, 29, 36 AND 43 AS INDUCTION THERAPY
     Route: 065
  3. ETOPOSIDE. [Suspect]
     Active Substance: ETOPOSIDE
     Indication: OVARIAN CANCER
     Dosage: 50 MG DAILY ON DAYS 1-14 AND 29-43 AS INDUCTION THERAPY
     Route: 048
  4. CISPLATIN. [Concomitant]
     Active Substance: CISPLATIN
     Dosage: 60 MG/M2 ON DAY 8
     Route: 065
  5. CISPLATIN. [Concomitant]
     Active Substance: CISPLATIN
     Dosage: 70 MG/M2 ON DAY 15 AND THEN CONTINUED
     Route: 065

REACTIONS (1)
  - Sepsis [Fatal]
